FAERS Safety Report 7752255-3 (Version None)
Quarter: 2011Q3

REPORT INFORMATION
  Report Type: 
  Country: None (occurrence: None)
  Receive Date: 20110915
  Receipt Date: 20110906
  Transmission Date: 20111222
  Serious: No
  Sender: FDA-Public Use
  Company Number: US-PFIZER INC-2011191786

PATIENT
  Sex: Male
  Weight: 73 kg

DRUGS (12)
  1. GEMFIBROZIL [Suspect]
     Indication: BLOOD TRIGLYCERIDES ABNORMAL
     Dosage: 300 MG, 1X/DAY
  2. FLECTOR [Suspect]
     Indication: ARTHRITIS
     Dosage: DAILY
     Dates: start: 20110815, end: 20110815
  3. VALSARTAN [Suspect]
     Indication: HYPERTENSION
     Dosage: 160 MG, 2X/DAY
  4. DOXYCYCLINE HYCLATE [Suspect]
     Indication: ROSACEA
     Dosage: 100 MG, 1X/DAY
  5. SOTALOL HCL [Suspect]
     Indication: ATRIAL FIBRILLATION
     Dosage: 40 MG, 2X/DAY
  6. FINASTERIDE [Suspect]
     Indication: PROSTATIC DISORDER
     Dosage: 5 MG, 1X/DAY
  7. SIMVASTATIN [Suspect]
     Indication: BLOOD CHOLESTEROL ABNORMAL
     Dosage: 20 MG, 1X/DAY
  8. NIFEDIPINE [Suspect]
     Indication: HYPERTENSION
     Dosage: 30 MG, 1X/DAY
  9. OMEPRAZOLE [Suspect]
     Indication: DYSPEPSIA
     Dosage: 20 MG, 1X/DAY
  10. OMEPRAZOLE [Suspect]
     Indication: GASTROOESOPHAGEAL REFLUX DISEASE
  11. FLECTOR [Suspect]
     Indication: INFLAMMATION
  12. FUROSEMIDE [Suspect]
     Indication: DIURETIC THERAPY
     Dosage: 40 MG, 1X/DAY

REACTIONS (4)
  - ERYTHEMA [None]
  - CIRCUMSTANCE OR INFORMATION CAPABLE OF LEADING TO MEDICATION ERROR [None]
  - OEDEMA PERIPHERAL [None]
  - PRURITUS [None]
